FAERS Safety Report 5228351-1 (Version None)
Quarter: 2007Q1

REPORT INFORMATION
  Report Type: 
  Country: None (occurrence: None)
  Receive Date: 20070131
  Receipt Date: 20070131
  Transmission Date: 20070707
  Serious: Yes (Other)
  Sender: FDA-Public Use
  Company Number: None

PATIENT
  Age: 56 Year
  Sex: Male
  Weight: 100 kg

DRUGS (1)
  1. LAMISIL [Suspect]
     Indication: HEADACHE
     Dosage: 250 PO 1 X D X 10 D; 1ST 10 D OF 3 MONTHS
     Route: 048

REACTIONS (1)
  - HEADACHE [None]
